FAERS Safety Report 25738685 (Version 1)
Quarter: 2025Q3

REPORT INFORMATION
  Report Type: Spontaneous
  Country: US (occurrence: US)
  Receive Date: 20250829
  Receipt Date: 20250829
  Transmission Date: 20251020
  Serious: No
  Sender: TAMARANG PHARMACEUTICALS
  Company Number: US-Tamarang, S.A.-2183440

PATIENT
  Age: 79 Year

DRUGS (10)
  1. ROCURONIUM BROMIDE [Suspect]
     Active Substance: ROCURONIUM BROMIDE
  2. TYLENOL [Concomitant]
     Active Substance: ACETAMINOPHEN
  3. PROPOFOL [Concomitant]
     Active Substance: PROPOFOL
  4. PHENYLEPHRINE [Concomitant]
     Active Substance: PHENYLEPHRINE
  5. MAGNESIUM [Concomitant]
     Active Substance: MAGNESIUM
  6. LIDOCAINE [Concomitant]
     Active Substance: LIDOCAINE
  7. KETOROLAC [Concomitant]
     Active Substance: KETOROLAC TROMETHAMINE
  8. FENTANYL [Concomitant]
     Active Substance: FENTANYL
  9. EPHEDRINE [Concomitant]
     Active Substance: EPHEDRINE
  10. DEXAMETHASONE [Concomitant]
     Active Substance: DEXAMETHASONE

REACTIONS (1)
  - Drug ineffective [Recovered/Resolved]
